FAERS Safety Report 13004542 (Version 3)
Quarter: 2017Q2

REPORT INFORMATION
  Report Type: Spontaneous
  Country: UA (occurrence: UA)
  Receive Date: 20161207
  Receipt Date: 20170509
  Transmission Date: 20170830
  Serious: Yes (Other)
  Sender: FDA-Public Use
  Company Number: UA-B.I. PHARMACEUTICALS,INC./RIDGEFIELD-2016-BI-083358

PATIENT
  Age: 50 Year
  Sex: Female

DRUGS (1)
  1. MOVALIS [Suspect]
     Active Substance: MELOXICAM
     Indication: ARTHRITIS
     Dosage: 15MG-1, 5ML
     Route: 030

REACTIONS (1)
  - Loss of consciousness [Recovered/Resolved]
